FAERS Safety Report 9491420 (Version 2)
Quarter: 2013Q1

REPORT INFORMATION
  Report Type: Not Available
  Country: US (occurrence: US)
  Receive Date: 20120619
  Receipt Date: 20120619
  Transmission Date: 20140127
  Serious: Yes (Hospitalization)
  Sender: FDA-Public Use
  Company Number: US-LUNDBECK-DKLU1069731

PATIENT
  Age: 21 None
  Sex: Male
  Weight: 69 kg

DRUGS (8)
  1. CLOBAZAM [Suspect]
     Indication: LENNOX-GASTAUT SYNDROME
     Route: 048
     Dates: start: 20060706
  2. CLOBAZAM [Suspect]
     Route: 048
     Dates: start: 20091218
  3. KEPPRA [Concomitant]
     Indication: CONVULSION
     Route: 048
     Dates: start: 201103
  4. VIMPAT [Concomitant]
     Indication: CONVULSION
     Route: 048
     Dates: start: 20110212, end: 20110315
  5. BANZEL [Concomitant]
     Indication: CONVULSION
     Route: 048
     Dates: start: 20110321
  6. AMPICILLIN [Concomitant]
     Indication: SINUSITIS
     Route: 048
     Dates: start: 20110315
  7. AUGMENTIN [Concomitant]
     Indication: SINUSITIS
     Route: 048
     Dates: start: 20110315
  8. MIRALAX [Concomitant]
     Indication: CONSTIPATION
     Route: 048
     Dates: start: 20110310

REACTIONS (1)
  - Convulsion [Recovered/Resolved]
